FAERS Safety Report 7574902-1 (Version None)
Quarter: 2011Q2

REPORT INFORMATION
  Report Type: 
  Country: None (occurrence: None)
  Receive Date: 20110627
  Receipt Date: 20110617
  Transmission Date: 20111010
  Serious: Yes (Hospitalization, Other)
  Sender: FDA-Public Use
  Company Number: US-EISAI INC-E7272-00103-SPO-US

PATIENT
  Age: 55 Year
  Sex: Female
  Weight: 68 kg

DRUGS (1)
  1. ONTAK [Suspect]
     Route: 041
     Dates: start: 20110523, end: 20110525

REACTIONS (2)
  - WEIGHT INCREASED [None]
  - BLOOD ALBUMIN DECREASED [None]
